FAERS Safety Report 18292451 (Version 2)
Quarter: 2020Q3

REPORT INFORMATION
  Report Type: Spontaneous
  Country: PL (occurrence: PL)
  Receive Date: 20200922
  Receipt Date: 20200924
  Transmission Date: 20201103
  Serious: Yes (Other)
  Sender: FDA-Public Use
  Company Number: PL-ROCHE-2681122

PATIENT
  Age: 85 Year
  Sex: Male
  Weight: 80 kg

DRUGS (4)
  1. RITUXIMAB. [Suspect]
     Active Substance: RITUXIMAB
     Indication: PRODUCT USED FOR UNKNOWN INDICATION
     Route: 065
     Dates: start: 20180125, end: 20200624
  2. SORTIS [Concomitant]
     Active Substance: ATORVASTATIN
     Dosage: ONGOING
     Dates: start: 20190601
  3. AXTIL [Concomitant]
     Active Substance: RAMIPRIL
     Dosage: ONGOING
     Dates: start: 20190601
  4. TORSEMED [Concomitant]
     Active Substance: TORSEMIDE
     Dates: start: 20200904

REACTIONS (2)
  - Chronic kidney disease [Not Recovered/Not Resolved]
  - Cardiac failure chronic [Not Recovered/Not Resolved]

NARRATIVE: CASE EVENT DATE: 20190601
